FAERS Safety Report 9133244 (Version 1)
Quarter: 2013Q1

REPORT INFORMATION
  Report Type: Report from Study
  Country: US (occurrence: US)
  Receive Date: 20130301
  Receipt Date: 20130301
  Transmission Date: 20140127
  Serious: Yes (Hospitalization)
  Sender: FDA-Public Use
  Company Number: US-ABBOTT-13P-163-1054174-00

PATIENT
  Age: 76 Year
  Sex: Male

DRUGS (2)
  1. HUMIRA [Suspect]
     Indication: CROHN^S DISEASE
     Dates: start: 20111122, end: 20121001
  2. HYDROCORTISONE [Concomitant]
     Indication: CROHN^S DISEASE
     Route: 054

REACTIONS (10)
  - Procedural complication [Recovering/Resolving]
  - Colectomy [Recovering/Resolving]
  - Ileostomy [Recovering/Resolving]
  - Drug ineffective [Unknown]
  - Pneumonia [Recovered/Resolved]
  - Nausea [Recovered/Resolved]
  - Decreased appetite [Recovered/Resolved]
  - Anaemia [Recovered/Resolved]
  - Blood albumin decreased [Recovered/Resolved]
  - Weight decreased [Recovered/Resolved]
